FAERS Safety Report 8792478 (Version 2)
Quarter: 2013Q4

REPORT INFORMATION
  Report Type: Spontaneous
  Country: US (occurrence: US)
  Receive Date: 20120918
  Receipt Date: 20131101
  Transmission Date: 20140711
  Serious: No
  Sender: FDA-Public Use
  Company Number: US-009507513-1209USA004044

PATIENT
  Sex: Female

DRUGS (13)
  1. PEPCID [Suspect]
     Dosage: UNK
     Route: 048
  2. ALDACTONE TABLETS [Concomitant]
     Dosage: 50 MG, UNK
     Route: 048
  3. REVATIO [Concomitant]
     Dosage: 20 MG, UNK
     Route: 048
  4. ATROVENT [Concomitant]
     Dosage: 18 MICROGRAM, UNK
     Route: 055
  5. NEURONTIN [Concomitant]
     Dosage: 300 MG, UNK
     Route: 048
  6. LASIX (FUROSEMIDE) [Concomitant]
     Dosage: 20 MG, UNK
     Route: 048
  7. NEXIUM [Concomitant]
     Dosage: UNK MG, UNK
     Route: 048
  8. CYMBALTA [Concomitant]
     Dosage: 60 MG, UNK
     Route: 048
  9. SINEQUAN [Concomitant]
     Dosage: 25 MG, UNK
     Route: 048
  10. LANOXIN [Concomitant]
     Dosage: 125 MICROGRAM, UNK
     Route: 048
  11. AMBIEN [Concomitant]
     Dosage: 10 MG, UNK
     Route: 048
  12. SOMA [Concomitant]
     Dosage: 350 UNK, UNK
     Route: 048
  13. LORTAB [Concomitant]
     Dosage: 7.5-500 MG, UNK
     Route: 048

REACTIONS (2)
  - Respiratory distress [Unknown]
  - Heart rate increased [Unknown]
